FAERS Safety Report 8957718 (Version 1)
Quarter: 2012Q4

REPORT INFORMATION
  Report Type: 
  Country: BR (occurrence: BR)
  Receive Date: 20121210
  Receipt Date: 20121210
  Transmission Date: 20130627
  Serious: Yes (Other)
  Sender: FDA-Public Use
  Company Number: BR-PFIZER INC-2012295949

PATIENT
  Sex: Male

DRUGS (1)
  1. CAVERJECT [Suspect]
     Dosage: 20 ug, UNK

REACTIONS (3)
  - Diabetes mellitus [Unknown]
  - Drug ineffective [Unknown]
  - Injection site pain [Unknown]
